FAERS Safety Report 6431681-9 (Version None)
Quarter: 2009Q4

REPORT INFORMATION
  Report Type: 
  Country: None (occurrence: None)
  Receive Date: 20091103
  Receipt Date: 20091022
  Transmission Date: 20100525
  Serious: Yes (Hospitalization)
  Sender: FDA-Public Use
  Company Number: 8051329

PATIENT
  Age: 25 Year
  Sex: Male
  Weight: 82 kg

DRUGS (3)
  1. CERTOLIZUMAB PEGOL [Suspect]
     Indication: CROHN'S DISEASE
     Dosage: 400 MG 1/2W SC
     Route: 058
     Dates: start: 20061109, end: 20060101
  2. CERTOLIZUMAB PEGOL [Suspect]
     Indication: CROHN'S DISEASE
     Dosage: 400 MG SC
     Route: 058
     Dates: start: 20060101, end: 20070514
  3. CERTOLIZUMAB PEGOL [Suspect]
     Indication: CROHN'S DISEASE
     Dosage: 400 MG 1/2W SC
     Route: 058
     Dates: start: 20070523, end: 20090828

REACTIONS (9)
  - ABDOMINAL ABSCESS [None]
  - CONDITION AGGRAVATED [None]
  - CROHN'S DISEASE [None]
  - INTESTINAL DILATATION [None]
  - INTESTINAL FISTULA [None]
  - NEOPLASM [None]
  - PLATELET COUNT INCREASED [None]
  - RECTAL STENOSIS [None]
  - SUBCUTANEOUS ABSCESS [None]
